FAERS Safety Report 7335904-3 (Version None)
Quarter: 2011Q1

REPORT INFORMATION
  Report Type: 
  Country: None (occurrence: None)
  Receive Date: 20110307
  Receipt Date: 20110301
  Transmission Date: 20110831
  Serious: Yes (Life-Threatening, Hospitalization)
  Sender: FDA-Public Use
  Company Number: US-ASTRAZENECA-2011SE11192

PATIENT
  Age: 50 Year
  Sex: Female
  Weight: 73.5 kg

DRUGS (17)
  1. SEROQUEL XR [Suspect]
     Indication: MANIA
     Route: 048
     Dates: start: 20060101
  2. PRAVASTATIN [Concomitant]
  3. LITHIUM CARBONATE [Concomitant]
     Dosage: TID
  4. MIRTAZAPINE [Concomitant]
  5. SEROQUEL XR [Suspect]
     Route: 048
  6. EPITOL [Concomitant]
  7. SEROQUEL XR [Suspect]
     Route: 048
  8. SEROQUEL XR [Suspect]
     Route: 048
  9. SEROQUEL XR [Suspect]
     Route: 048
  10. SEROQUEL XR [Suspect]
     Route: 048
  11. ASA [Concomitant]
  12. KLONOPIN [Concomitant]
  13. LISINOPRIL [Concomitant]
  14. CITRILOPRAM [Concomitant]
  15. VITAMIN D [Concomitant]
     Dosage: WEEK
  16. SEROQUEL XR [Suspect]
     Indication: BIPOLAR DISORDER
     Route: 048
     Dates: start: 20060101
  17. SEROQUEL XR [Suspect]
     Route: 048

REACTIONS (10)
  - GAIT DISTURBANCE [None]
  - COMA [None]
  - DYSGRAPHIA [None]
  - HYPERSENSITIVITY [None]
  - WALKING AID USER [None]
  - INSOMNIA [None]
  - ARTERIAL BYPASS OPERATION [None]
  - APHAGIA [None]
  - ABDOMINAL PAIN UPPER [None]
  - HYPOKINESIA [None]
